FAERS Safety Report 25345526 (Version 1)
Quarter: 2025Q2

REPORT INFORMATION
  Report Type: Spontaneous
  Country: FR (occurrence: FR)
  Receive Date: 20250522
  Receipt Date: 20250522
  Transmission Date: 20250716
  Serious: Yes (Hospitalization, Other)
  Sender: RANBAXY
  Company Number: FR-SUN PHARMACEUTICAL INDUSTRIES LTD-2025RR-508630

PATIENT
  Age: 44 Year
  Sex: Male

DRUGS (1)
  1. BACLOFEN [Suspect]
     Active Substance: BACLOFEN
     Indication: Therapeutic drug monitoring
     Route: 037

REACTIONS (6)
  - Overdose [Recovering/Resolving]
  - Coma [Recovering/Resolving]
  - Generalised tonic-clonic seizure [Recovering/Resolving]
  - Hypotension [Recovering/Resolving]
  - Sinus bradycardia [Recovering/Resolving]
  - Tachycardia [Recovering/Resolving]
